FAERS Safety Report 24764887 (Version 1)
Quarter: 2024Q4

REPORT INFORMATION
  Report Type: Spontaneous
  Country: JP (occurrence: JP)
  Receive Date: 20241223
  Receipt Date: 20241223
  Transmission Date: 20250115
  Serious: Yes (Hospitalization)
  Sender: Vantive US Healthcare
  Company Number: JP-VANTIVE-2024VAN021351

PATIENT
  Age: 74 Year
  Sex: Male

DRUGS (1)
  1. REGUNEAL LCA [Suspect]
     Active Substance: CALCIUM CHLORIDE\DEXTROSE MONOHYDRATE\HYDROCHLORIC ACID\MAGNESIUM CHLORIDE\SODIUM BICARBONATE\SODIUM
     Indication: End stage renal disease
     Dosage: 7000ML
     Route: 033

REACTIONS (1)
  - Intervertebral disc protrusion [Recovering/Resolving]

NARRATIVE: CASE EVENT DATE: 20241107
